FAERS Safety Report 18089136 (Version 1)
Quarter: 2020Q3

REPORT INFORMATION
  Report Type: Other
  Country: GB (occurrence: GB)
  Receive Date: 20200730
  Receipt Date: 20200730
  Transmission Date: 20201103
  Serious: Yes (Other)
  Sender: FDA-Public Use
  Company Number: GB-ROCHE-2351482

PATIENT
  Age: 48 Year
  Sex: Female

DRUGS (36)
  1. TRASTUZUMAB EMTANSINE [Suspect]
     Active Substance: ADO-TRASTUZUMAB EMTANSINE
     Indication: BREAST CANCER METASTATIC
     Route: 042
     Dates: start: 20190115
  2. ZOMORPH [Concomitant]
     Active Substance: MORPHINE SULFATE
     Indication: MUSCULOSKELETAL CHEST PAIN
     Route: 048
     Dates: end: 20171001
  3. ZOMORPH [Concomitant]
     Active Substance: MORPHINE SULFATE
     Route: 048
     Dates: start: 20171002, end: 20190116
  4. SALBUTAMOL [Concomitant]
     Active Substance: ALBUTEROL
  5. LAXIDO [Concomitant]
     Active Substance: POLYETHYLENE GLYCOL 3350\POTASSIUM CHLORIDE\SODIUM BICARBONATE\SODIUM CHLORIDE
  6. AMOXCILLIN [Concomitant]
     Active Substance: AMOXICILLIN
  7. FLUCONAZOLE. [Concomitant]
     Active Substance: FLUCONAZOLE
  8. SALBUTAMOL [Concomitant]
     Active Substance: ALBUTEROL
  9. SALINE [Concomitant]
     Active Substance: SODIUM CHLORIDE
  10. DIFFLAM [Concomitant]
     Active Substance: BENZYDAMINE HYDROCHLORIDE
  11. TRASTUZUMAB. [Suspect]
     Active Substance: TRASTUZUMAB
     Indication: BREAST CANCER METASTATIC
     Route: 058
     Dates: start: 20170918, end: 20181205
  12. ORAMORPH [Concomitant]
     Active Substance: MORPHINE SULFATE
     Route: 048
     Dates: start: 20190506, end: 20190513
  13. MEROPENEM. [Concomitant]
     Active Substance: MEROPENEM
  14. CALCICHEW D3 FORTE [Concomitant]
     Active Substance: CALCIUM\CHOLECALCIFEROL
  15. FLU VACCINATION [Concomitant]
     Active Substance: INFLUENZA VIRUS VACCINE
  16. GLYCOPYRONIUM [Concomitant]
     Active Substance: GLYCOPYRRONIUM
  17. DEXAMETHASONE. [Concomitant]
     Active Substance: DEXAMETHASONE
  18. GABAPENTIN. [Concomitant]
     Active Substance: GABAPENTIN
  19. LANSOPRAZOLE. [Concomitant]
     Active Substance: LANSOPRAZOLE
  20. IBUPROFEN. [Concomitant]
     Active Substance: IBUPROFEN
  21. DENOSUMAB [Concomitant]
     Active Substance: DENOSUMAB
  22. LETROZOLE. [Suspect]
     Active Substance: LETROZOLE
     Indication: BREAST CANCER METASTATIC
     Route: 048
     Dates: start: 201709
  23. ORAMORPH [Concomitant]
     Active Substance: MORPHINE SULFATE
     Indication: BONE PAIN
     Route: 048
     Dates: end: 20171002
  24. SENNA [Concomitant]
     Active Substance: SENNA LEAF\SENNOSIDES\SENNOSIDES A AND B
  25. MIDAZOLAM. [Concomitant]
     Active Substance: MIDAZOLAM
  26. TAZOCIN [Concomitant]
     Active Substance: PIPERACILLIN SODIUM\TAZOBACTAM SODIUM
  27. CITALOPRAM [Concomitant]
     Active Substance: CITALOPRAM HYDROBROMIDE
     Route: 048
  28. ZOMORPH [Concomitant]
     Active Substance: MORPHINE SULFATE
     Route: 048
     Dates: start: 20190116
  29. PARACETAMOL [Concomitant]
     Active Substance: ACETAMINOPHEN
  30. NITROFURANTOIN. [Concomitant]
     Active Substance: NITROFURANTOIN
  31. LEVOMEPROMAZINE [Concomitant]
     Active Substance: LEVOMEPROMAZINE
  32. FLUCLOXACILLIN [Concomitant]
     Active Substance: FLUCLOXACILLIN
  33. MORPHINE [Concomitant]
     Active Substance: MORPHINE
  34. DIAMORPHINE [Concomitant]
     Active Substance: DIAMORPHINE
  35. CARBOCISTEINE [Concomitant]
     Active Substance: CARBOCYSTEINE
  36. INHIXA [Concomitant]
     Active Substance: ENOXAPARIN SODIUM

REACTIONS (1)
  - Hypokalaemia [Recovered/Resolved]

NARRATIVE: CASE EVENT DATE: 20190513
